FAERS Safety Report 12728167 (Version 1)
Quarter: 2016Q3

REPORT INFORMATION
  Report Type: Spontaneous
  Country: US (occurrence: US)
  Receive Date: 20160909
  Receipt Date: 20160909
  Transmission Date: 20161109
  Serious: No
  Sender: FDA-Public Use
  Company Number: US-BECTON DICKINSON-2016BDN00011

PATIENT
  Sex: Female
  Weight: 113.38 kg

DRUGS (11)
  1. LOPRESSOR [Concomitant]
     Active Substance: METOPROLOL TARTRATE
     Dosage: 50 MG, 2X/DAY
     Route: 048
  2. FISH OIL [Concomitant]
     Active Substance: FISH OIL
     Dosage: 1000 MG, 1X/DAY
     Route: 048
  3. CHLORAPREP WITH TINT [Suspect]
     Active Substance: CHLORHEXIDINE GLUCONATE\ISOPROPYL ALCOHOL
     Indication: INFECTION PROPHYLAXIS
     Dosage: 10.5 ML, TWICE TO LEFT KNEE, LOWER LEG AND FOOT
     Route: 061
     Dates: start: 20151217, end: 20151217
  4. XALATAN [Concomitant]
     Active Substance: LATANOPROST
     Dosage: 1 GTT, 1X/DAY
     Route: 047
  5. DITROPAN-XL [Concomitant]
     Dosage: 10 MG, 1X/DAY
  6. CALCIUM-VITAMIN D [Concomitant]
     Dosage: 1 TABLETS, 1X/DAY
     Route: 048
  7. ALCOHOL SCRUB [Suspect]
     Active Substance: ALCOHOL
  8. ASPIRIN. [Concomitant]
     Active Substance: ASPIRIN
     Dosage: 81 MG, 1X/DAY
     Route: 048
  9. PRINIVIL/ZESTRIL [Concomitant]
     Dosage: 20 MG, 2X/DAY
     Route: 048
  10. MOBIC [Concomitant]
     Active Substance: MELOXICAM
     Dosage: 15 MG, 1X/DAY
     Route: 048
  11. MULTIVITAMIN [Concomitant]
     Active Substance: VITAMINS
     Dosage: 1 TABLETS, 1X/DAY
     Route: 048

REACTIONS (2)
  - Rash erythematous [Recovered/Resolved]
  - Application site rash [None]
